FAERS Safety Report 22247456 (Version 1)
Quarter: 2023Q2

REPORT INFORMATION
  Report Type: Spontaneous
  Country: CN (occurrence: CN)
  Receive Date: 20230425
  Receipt Date: 20230425
  Transmission Date: 20230722
  Serious: Yes (Other)
  Sender: FDA-Public Use
  Company Number: CN-009507513-2304CHN008180

PATIENT
  Age: 34 Year
  Sex: Male
  Weight: 69 kg

DRUGS (8)
  1. CILASTATIN SODIUM\IMIPENEM [Suspect]
     Active Substance: CILASTATIN SODIUM\IMIPENEM
     Indication: Abdominal infection
     Dosage: 0.5G Q8H
     Route: 041
     Dates: start: 20230302, end: 20230305
  2. VALPROATE SODIUM [Suspect]
     Active Substance: VALPROATE SODIUM
     Indication: Epilepsy
     Dosage: 0.5G BID
     Route: 048
     Dates: start: 20220401, end: 20230414
  3. SODIUM CHLORIDE [Concomitant]
     Active Substance: SODIUM CHLORIDE
     Indication: Medication dilution
     Dosage: 100ML QD
     Route: 041
     Dates: start: 20230227, end: 20230302
  4. SODIUM CHLORIDE [Concomitant]
     Active Substance: SODIUM CHLORIDE
     Dosage: 100ML Q8H
     Route: 041
     Dates: start: 20230302, end: 20230305
  5. CARBAMAZEPINE [Concomitant]
     Active Substance: CARBAMAZEPINE
     Indication: Epilepsy
     Dosage: 0.2G BID
     Route: 048
     Dates: start: 20220401, end: 20230414
  6. CEFTRIAXONE SODIUM [Concomitant]
     Active Substance: CEFTRIAXONE SODIUM
     Indication: Abdominal infection
     Dosage: 2G QD
     Route: 041
     Dates: start: 20230227, end: 20230302
  7. DEXTROSE [Concomitant]
     Active Substance: DEXTROSE\DEXTROSE MONOHYDRATE
     Indication: Medication dilution
     Dosage: 250ML QD
     Route: 041
     Dates: start: 20230227, end: 20230304
  8. PHLOROGLUCINOL [Concomitant]
     Active Substance: PHLOROGLUCINOL
     Indication: Abdominal infection
     Dosage: 80MG QD
     Route: 041
     Dates: start: 20230227, end: 20230304

REACTIONS (4)
  - Epilepsy [Recovering/Resolving]
  - Cyanosis [Recovering/Resolving]
  - Hyperhidrosis [Recovering/Resolving]
  - Labelled drug-drug interaction issue [Unknown]

NARRATIVE: CASE EVENT DATE: 20230101
